FAERS Safety Report 17930257 (Version 1)
Quarter: 2020Q2

REPORT INFORMATION
  Report Type: Spontaneous
  Country: ES (occurrence: ES)
  Receive Date: 20200623
  Receipt Date: 20200623
  Transmission Date: 20200714
  Serious: Yes (Hospitalization)
  Sender: FDA-Public Use
  Company Number: ES-TEVA-2020-ES-1789660

PATIENT
  Age: 76 Year
  Sex: Female

DRUGS (2)
  1. HIDROXICLOROQUINA (2143A) [Suspect]
     Active Substance: HYDROXYCHLOROQUINE
     Indication: POLYSEROSITIS
     Dosage: 200 MG (1-0-0,5); UNIT DOSE: 300 MG
     Route: 048
     Dates: start: 20200213
  2. IMUREL 50 MG COMPRIMIDOS RECUBIERTOS CON PELICULA , 50 COMPRIMIDOS [Suspect]
     Active Substance: AZATHIOPRINE
     Indication: POLYSEROSITIS
     Dosage: 50 MILLIGRAM DAILY; 1-0-0
     Route: 048
     Dates: start: 20200330, end: 20200522

REACTIONS (1)
  - Hepatitis [Recovering/Resolving]

NARRATIVE: CASE EVENT DATE: 20200522
